FAERS Safety Report 11286494 (Version 1)
Quarter: 2015Q3

REPORT INFORMATION
  Report Type: Report from Study
  Country: ES (occurrence: ES)
  Receive Date: 20150721
  Receipt Date: 20150721
  Transmission Date: 20151125
  Serious: Yes (Other)
  Sender: FDA-Public Use
  Company Number: ES-ROCHE-1608491

PATIENT

DRUGS (3)
  1. PEGINTERFERON ALFA-2B [Suspect]
     Active Substance: PEGINTERFERON ALFA-2B
     Indication: CHRONIC HEPATITIS C
     Route: 058
  2. RIBAVIRIN. [Suspect]
     Active Substance: RIBAVIRIN
     Indication: CHRONIC HEPATITIS C
     Dosage: 200 MG/DAY ORALLY AND WAS INCREASED TO A MAXIMUM OF 600 MG/DAY
     Route: 048
  3. PEG-INTERFERON ALFA 2A [Suspect]
     Active Substance: PEGINTERFERON ALFA-2A
     Indication: CHRONIC HEPATITIS C
     Route: 058

REACTIONS (9)
  - Anaemia [Unknown]
  - Peritonitis [Unknown]
  - Hip surgery [Unknown]
  - Fatigue [Unknown]
  - Haemolytic anaemia [Unknown]
  - Myalgia [Unknown]
  - Influenza like illness [Unknown]
  - Neutropenia [Unknown]
  - Seizure [Unknown]
